FAERS Safety Report 10638462 (Version 3)
Quarter: 2014Q4

REPORT INFORMATION
  Report Type: Spontaneous
  Country: US (occurrence: None)
  Receive Date: 20141204
  Receipt Date: 20141215
  Transmission Date: 20150529
  Serious: Yes (Hospitalization, Other)
  Sender: FDA-Public Use
  Company Number: ADR-2014-02271

PATIENT
  Age: 68 Year
  Sex: Female

DRUGS (1)
  1. LIORESAL [Suspect]
     Active Substance: BACLOFEN
     Indication: MUSCLE SPASTICITY
     Dates: start: 20140814

REACTIONS (8)
  - Muscle spasticity [None]
  - No therapeutic response [None]
  - Gait disturbance [None]
  - Muscle spasms [None]
  - Peroneal nerve palsy [None]
  - Condition aggravated [None]
  - Dysstasia [None]
  - Muscular weakness [None]

NARRATIVE: CASE EVENT DATE: 20140814
